FAERS Safety Report 4399185-5 (Version None)
Quarter: 2004Q3

REPORT INFORMATION
  Report Type: 
  Country: None (occurrence: None)
  Receive Date: 20040715
  Receipt Date: 20040715
  Transmission Date: 20050211
  Serious: Yes (Hospitalization)
  Sender: FDA-Public Use
  Company Number: None

PATIENT
  Age: 49 Year
  Sex: Male
  Weight: 52.3451 kg

DRUGS (2)
  1. TAXOTERE [Suspect]
     Indication: TONSIL CANCER
     Dosage: 20 MG/M2 WKLY X4 IV
     Route: 042
  2. AMISTOSTINE  MEDIMMUNE [Suspect]
     Indication: TONSIL CANCER
     Dosage: 500 MG

REACTIONS (15)
  - BLOOD PRESSURE DIASTOLIC DECREASED [None]
  - BRONCHITIS [None]
  - DEHYDRATION [None]
  - DIARRHOEA [None]
  - DISCOMFORT [None]
  - DYSPNOEA EXERTIONAL [None]
  - FATIGUE [None]
  - FLUSHING [None]
  - HEART RATE INCREASED [None]
  - MUCOSAL INFLAMMATION [None]
  - PAIN EXACERBATED [None]
  - PNEUMONIA [None]
  - SCLERAL DISORDER [None]
  - SWELLING [None]
  - TREATMENT NONCOMPLIANCE [None]
